FAERS Safety Report 25628788 (Version 2)
Quarter: 2025Q3

REPORT INFORMATION
  Report Type: Spontaneous
  Country: JP (occurrence: JP)
  Receive Date: 20250731
  Receipt Date: 20250822
  Transmission Date: 20251020
  Serious: Yes (Life-Threatening, Hospitalization, Other)
  Sender: FERRING
  Company Number: JP-FERRINGPH-2025FE04037

PATIENT

DRUGS (3)
  1. MENOTROPINS [Suspect]
     Active Substance: MENOTROPINS
     Indication: Controlled ovarian stimulation
     Route: 065
  2. GONADOTROPHIN, CHORIONIC [Suspect]
     Active Substance: GONADOTROPHIN, CHORIONIC
     Indication: Controlled ovarian stimulation
     Route: 065
  3. DYDROGESTERONE [Suspect]
     Active Substance: DYDROGESTERONE
     Indication: Controlled ovarian stimulation
     Dosage: 20 MG, DAILY
     Route: 065

REACTIONS (3)
  - Renal failure [Not Recovered/Not Resolved]
  - Respiratory distress [Unknown]
  - Ovarian hyperstimulation syndrome [Unknown]
